FAERS Safety Report 6015217-2 (Version None)
Quarter: 2008Q4

REPORT INFORMATION
  Report Type: 
  Country: None (occurrence: None)
  Receive Date: 20081218
  Receipt Date: 20081202
  Transmission Date: 20090506
  Serious: Yes (Other)
  Sender: FDA-Public Use
  Company Number: KV200800787

PATIENT
  Age: 61 Year
  Sex: Male

DRUGS (3)
  1. ISOSORBIDE MONONITRATE [Suspect]
     Indication: HYPERTENSION
     Dosage: 60 MG, QD, ORAL
     Route: 048
     Dates: end: 20081001
  2. INSULIN HUMALOG (INSULIN LISPRO) [Concomitant]
  3. ALTACE [Concomitant]

REACTIONS (2)
  - HYPOTENSION [None]
  - PRODUCT QUALITY ISSUE [None]
